FAERS Safety Report 6371913-9 (Version None)
Quarter: 2009Q3

REPORT INFORMATION
  Report Type: 
  Country: None (occurrence: None)
  Receive Date: 20090923
  Receipt Date: 20090908
  Transmission Date: 20100115
  Serious: Yes (Life-Threatening, Hospitalization)
  Sender: FDA-Public Use
  Company Number: GB-PFIZER INC-2005169714

PATIENT
  Age: 69 Year

DRUGS (6)
  1. ATORVASTATIN CALCIUM [Suspect]
     Dosage: UNK
     Route: 065
  2. ATENOLOL [Suspect]
     Dosage: UNK
     Route: 065
  3. AMITRIPTYLINE HYDROCHLORIDE [Suspect]
     Dosage: UNK
     Route: 065
  4. ACETYLSALICYLIC ACID [Suspect]
     Dosage: UNK
     Route: 065
  5. FELODIPINE [Suspect]
     Dosage: UNK
     Route: 065
  6. RAMIPRIL [Suspect]
     Indication: HYPERTENSION
     Dosage: UNK
     Route: 065
     Dates: start: 19980101

REACTIONS (5)
  - ANGIOEDEMA [None]
  - DYSKINESIA [None]
  - SALIVARY HYPERSECRETION [None]
  - SWELLING FACE [None]
  - SWOLLEN TONGUE [None]
